FAERS Safety Report 18215717 (Version 1)
Quarter: 2020Q3

REPORT INFORMATION
  Report Type: Spontaneous
  Country: GB (occurrence: GB)
  Receive Date: 20200831
  Receipt Date: 20200831
  Transmission Date: 20201103
  Serious: Yes (Disabling)
  Sender: FDA-Public Use
  Company Number: GB-ACCORD-198220

PATIENT
  Age: 64 Year
  Sex: Female
  Weight: 73.6 kg

DRUGS (1)
  1. ZOLEDRONIC ACID [Suspect]
     Active Substance: ZOLEDRONIC ACID
     Indication: ADJUVANT THERAPY
     Route: 042
     Dates: start: 20200729, end: 20200729

REACTIONS (3)
  - Arthralgia [Not Recovered/Not Resolved]
  - Muscular weakness [Unknown]
  - Pain [Not Recovered/Not Resolved]

NARRATIVE: CASE EVENT DATE: 20200730
